FAERS Safety Report 6644123-5 (Version None)
Quarter: 2010Q1

REPORT INFORMATION
  Report Type: 
  Country: None (occurrence: None)
  Receive Date: 20100322
  Receipt Date: 20100310
  Transmission Date: 20100710
  Serious: Yes (Other)
  Sender: FDA-Public Use
  Company Number: PHHY2010CA15230

PATIENT
  Sex: Female

DRUGS (2)
  1. EXJADE [Suspect]
     Indication: BREAST CANCER METASTATIC
     Dosage: 1250 MG DAILY
     Route: 048
     Dates: start: 20100113, end: 20100307
  2. EXJADE [Suspect]
     Indication: BONE MARROW DISORDER

REACTIONS (2)
  - BRAIN NEOPLASM [None]
  - CONVULSION [None]
